FAERS Safety Report 21375276 (Version 1)
Quarter: 2022Q3

REPORT INFORMATION
  Report Type: Report from Study
  Country: US (occurrence: US)
  Receive Date: 20220926
  Receipt Date: 20220926
  Transmission Date: 20221027
  Serious: Yes (Hospitalization, Other)
  Sender: FDA-Public Use
  Company Number: US-NOVARTISPH-NVSC2022US213163

PATIENT
  Age: 60 Year
  Sex: Male

DRUGS (2)
  1. ENTRESTO [Suspect]
     Active Substance: SACUBITRIL\VALSARTAN
     Indication: Ejection fraction decreased
     Dosage: UNK, BID (24/26 MG)
     Route: 065
     Dates: start: 202208
  2. LOSARTAN [Suspect]
     Active Substance: LOSARTAN
     Indication: Product used for unknown indication
     Dosage: UNK
     Route: 065
     Dates: start: 2012

REACTIONS (9)
  - Road traffic accident [Recovering/Resolving]
  - Troponin increased [Recovering/Resolving]
  - Ejection fraction decreased [Not Recovered/Not Resolved]
  - Vascular graft occlusion [Unknown]
  - Fluid retention [Unknown]
  - Hypertension [Unknown]
  - Cough [Not Recovered/Not Resolved]
  - Orthopnoea [Unknown]
  - Contraindicated product administered [Unknown]

NARRATIVE: CASE EVENT DATE: 20200101
